FAERS Safety Report 5145417-5 (Version None)
Quarter: 2006Q4

REPORT INFORMATION
  Report Type: 
  Country: None (occurrence: None)
  Receive Date: 20061101
  Receipt Date: 20061019
  Transmission Date: 20070319
  Serious: Yes (Other)
  Sender: FDA-Public Use
  Company Number: B0443854A

PATIENT
  Age: 9 Year
  Sex: Female

DRUGS (6)
  1. ALKERAN [Suspect]
     Indication: STEM CELL TRANSPLANT
     Dosage: 140 MG/M2 / CYCLIC
  2. MYLERAN [Suspect]
     Indication: STEM CELL TRANSPLANT
     Dosage: CYCLIC / INTRAVENOUS
     Route: 042
  3. CYCLOPHOSPHAMIDE [Suspect]
     Indication: STEM CELL TRANSPLANT
     Dosage: 120 MG/KG / CYCLIC
  4. ANTITHYMOCYTE (FORMULATION UNKNOWN) (ANTITHYMOCYTE IG) [Suspect]
     Indication: STEM CELL TRANSPLANT
     Dosage: CYCLIC
  5. CYCLOSPORINE [Suspect]
     Indication: DRUG USE FOR UNKNOWN INDICATION
  6. CLONAZEPAM [Concomitant]

REACTIONS (6)
  - ALANINE AMINOTRANSFERASE INCREASED [None]
  - ASPARTATE AMINOTRANSFERASE INCREASED [None]
  - CONVULSION [None]
  - ENCEPHALOPATHY [None]
  - HEPATOTOXICITY [None]
  - MUCOSAL INFLAMMATION [None]
